FAERS Safety Report 5454890-4 (Version None)
Quarter: 2007Q3

REPORT INFORMATION
  Report Type: 
  Country: None (occurrence: None)
  Receive Date: 20070917
  Receipt Date: 20061106
  Transmission Date: 20080115
  Serious: Yes (Disabling, Other)
  Sender: FDA-Public Use
  Company Number: US-ASTRAZENECA-2006UW20182

PATIENT
  Age: 66 Year
  Sex: Male

DRUGS (4)
  1. SEROQUEL [Suspect]
     Indication: DEPRESSION
     Route: 048
     Dates: start: 20060105
  2. SEROQUEL [Suspect]
     Route: 048
     Dates: start: 20060101
  3. PROMANYL [Concomitant]
     Indication: DEPRESSION
     Route: 048
     Dates: end: 20060515
  4. FLOVUTEN [Concomitant]
     Indication: DEPRESSION
     Route: 048

REACTIONS (2)
  - DYSKINESIA [None]
  - TREMOR [None]
